FAERS Safety Report 5140873-0 (Version None)
Quarter: 2006Q4

REPORT INFORMATION
  Report Type: 
  Country: None (occurrence: None)
  Receive Date: 20060901
  Receipt Date: 20060614
  Transmission Date: 20070319
  Serious: No
  Sender: FDA-Public Use
  Company Number: 2006MP000794

PATIENT
  Age: 75 Year
  Sex: Male
  Weight: 98.4306 kg

DRUGS (1)
  1. DACOGEN [Suspect]
     Indication: MYELODYSPLASTIC SYNDROME
     Dosage: 20 MG/M**2;QD;IV
     Route: 042
     Dates: start: 20060612, end: 20060613

REACTIONS (2)
  - FEELING COLD [None]
  - OFF LABEL USE [None]
